FAERS Safety Report 9288954 (Version 3)
Quarter: 2013Q4

REPORT INFORMATION
  Report Type: Report from Study
  Country: JP (occurrence: JP)
  Receive Date: 20130514
  Receipt Date: 20131126
  Transmission Date: 20140711
  Serious: Yes (Hospitalization)
  Sender: FDA-Public Use
  Company Number: JP-GLAXOSMITHKLINE-B0890798A

PATIENT
  Age: 71 Year
  Sex: Male
  Weight: 54 kg

DRUGS (16)
  1. SULTANOL [Suspect]
     Indication: CHRONIC OBSTRUCTIVE PULMONARY DISEASE
     Route: 055
     Dates: start: 20120321, end: 20121023
  2. SALBUTAMOL SULPHATE [Suspect]
     Indication: CHRONIC OBSTRUCTIVE PULMONARY DISEASE
     Route: 055
     Dates: start: 20120321, end: 20121023
  3. BAYASPIRIN [Concomitant]
     Indication: THROMBOSIS PROPHYLAXIS
     Route: 048
  4. PARIET [Concomitant]
     Indication: GASTRITIS PROPHYLAXIS
     Route: 048
  5. AMLODIN [Concomitant]
     Indication: HYPERTENSION
     Route: 048
  6. NITOROL R [Concomitant]
     Indication: ANGINA PECTORIS
     Route: 048
  7. TICLOPIDINE [Concomitant]
     Indication: THROMBOSIS PROPHYLAXIS
     Route: 048
  8. ALLOZYM [Concomitant]
     Route: 048
  9. LUPRAC [Concomitant]
     Indication: CARDIAC FAILURE
     Route: 048
     Dates: start: 20120711, end: 20120724
  10. THEODUR [Concomitant]
     Indication: CHRONIC OBSTRUCTIVE PULMONARY DISEASE
     Route: 048
  11. CHINESE MEDICINE [Concomitant]
     Indication: CHRONIC OBSTRUCTIVE PULMONARY DISEASE
     Route: 048
     Dates: end: 20121010
  12. MUCODYNE [Concomitant]
     Indication: CHRONIC OBSTRUCTIVE PULMONARY DISEASE
     Route: 048
     Dates: end: 20120918
  13. FLUTIDE [Concomitant]
     Indication: CHRONIC OBSTRUCTIVE PULMONARY DISEASE
     Route: 055
  14. JZOLOFT [Concomitant]
     Indication: OBSESSIVE-COMPULSIVE DISORDER
     Route: 048
  15. MUCODYNE [Concomitant]
     Indication: CHRONIC OBSTRUCTIVE PULMONARY DISEASE
     Route: 048
  16. SEROQUEL [Concomitant]
     Indication: OBSESSIVE-COMPULSIVE DISORDER
     Route: 048
     Dates: start: 20120625

REACTIONS (5)
  - Chronic obstructive pulmonary disease [Recovered/Resolved]
  - Cardiac failure [Recovered/Resolved]
  - Pneumonia [Recovered/Resolved]
  - Pulmonary embolism [Recovered/Resolved]
  - Pneumonia [Recovered/Resolved]
